FAERS Safety Report 4398566-3 (Version None)
Quarter: 2004Q3

REPORT INFORMATION
  Report Type: 
  Country: None (occurrence: None)
  Receive Date: 20040712
  Receipt Date: 20040701
  Transmission Date: 20050211
  Serious: Yes (Life-Threatening, Hospitalization)
  Sender: FDA-Public Use
  Company Number: 2004221951JP

PATIENT
  Age: 53 Year
  Sex: Female
  Weight: 50 kg

DRUGS (4)
  1. CABERGOLINE [Suspect]
     Indication: PARKINSON'S DISEASE
     Dosage: 2 MG DAILY, ORAL
     Route: 048
  2. LOXOPROFEN SODIUM (LOXOPROFEN SODIUM) [Suspect]
     Indication: OEDEMA PERIPHERAL
     Dosage: 60 MG, TID, ORAL
     Route: 048
     Dates: start: 20040623
  3. ENTACAPONE (ENTACAPONE) [Suspect]
     Indication: PARKINSON'S DISEASE
     Dosage: SEE IMAGE
     Dates: start: 20040605, end: 20040614
  4. ENTACAPONE (ENTACAPONE) [Suspect]
     Indication: PARKINSON'S DISEASE
     Dosage: SEE IMAGE
     Dates: start: 20040327

REACTIONS (18)
  - AORTIC VALVE INCOMPETENCE [None]
  - CARDIAC FAILURE [None]
  - CARDIAC VALVE DISEASE [None]
  - ENDOCARDITIS [None]
  - ERYTHEMA [None]
  - FACE OEDEMA [None]
  - FLUID RETENTION [None]
  - INDURATION [None]
  - INFLAMMATION [None]
  - MITRAL VALVE INCOMPETENCE [None]
  - PLATELET COUNT DECREASED [None]
  - PLEURAL EFFUSION [None]
  - PULMONARY OEDEMA [None]
  - PULMONARY VALVE INCOMPETENCE [None]
  - RALES [None]
  - RESPIRATORY DISORDER [None]
  - TRICUSPID VALVE INCOMPETENCE [None]
  - WEIGHT INCREASED [None]
